FAERS Safety Report 5575580-3 (Version None)
Quarter: 2007Q4

REPORT INFORMATION
  Report Type: 
  Country: None (occurrence: None)
  Receive Date: 20071226
  Receipt Date: 20071214
  Transmission Date: 20080405
  Serious: Yes (Hospitalization)
  Sender: FDA-Public Use
  Company Number: 231306J07USA

PATIENT
  Age: 41 Year
  Sex: Female

DRUGS (1)
  1. REBIF [Suspect]
     Indication: MULTIPLE SCLEROSIS
     Dosage: 22 MCG, 3 IN 7 DAYS, SUBCUTANEOUS; 44 MCG, 1 WEEKS, SUBCUTANEOUS; 22 MCG, 3 IN 1 WEEKS, SUBCUTANEOUS
     Route: 058
     Dates: start: 20061001, end: 20070601

REACTIONS (8)
  - ABDOMINAL DISTENSION [None]
  - HEADACHE [None]
  - INJECTION SITE REACTION [None]
  - INTESTINAL OBSTRUCTION [None]
  - PAIN [None]
  - PANCREATIC NEOPLASM [None]
  - SCAR [None]
  - VOMITING [None]
